FAERS Safety Report 19404559 (Version 1)
Quarter: 2021Q2

REPORT INFORMATION
  Report Type: Spontaneous
  Country: US (occurrence: US)
  Receive Date: 20210611
  Receipt Date: 20210611
  Transmission Date: 20210717
  Serious: Yes (Other)
  Sender: FDA-Public Use
  Company Number: None

PATIENT
  Age: 35 Year
  Sex: Female
  Weight: 95.4 kg

DRUGS (4)
  1. CONTRAVE [Suspect]
     Active Substance: BUPROPION HYDROCHLORIDE\NALTREXONE HYDROCHLORIDE
     Indication: WEIGHT DECREASED
     Dosage: ?          QUANTITY:1 TABLET(S);?
     Route: 048
     Dates: start: 20210520, end: 20210604
  2. MELATONIN [Concomitant]
     Active Substance: MELATONIN
  3. DAILY VITAMIN [Concomitant]
     Active Substance: VITAMINS
  4. LAMICTAL [Concomitant]
     Active Substance: LAMOTRIGINE

REACTIONS (4)
  - Throat tightness [None]
  - Pharyngeal swelling [None]
  - Pain in jaw [None]
  - Hypersensitivity [None]

NARRATIVE: CASE EVENT DATE: 20210520
